FAERS Safety Report 9549376 (Version 1)
Quarter: 2013Q3

REPORT INFORMATION
  Report Type: Spontaneous
  Country: US (occurrence: US)
  Receive Date: 20130924
  Receipt Date: 20130924
  Transmission Date: 20140515
  Serious: No
  Sender: FDA-Public Use
  Company Number: US-PFIZER INC-2013274251

PATIENT
  Sex: 0

DRUGS (1)
  1. DESVENLAFAXINE SUCCINATE MONOHYDRATE [Suspect]
     Dosage: UNK

REACTIONS (4)
  - Mood altered [Unknown]
  - Binge eating [Unknown]
  - Nausea [Unknown]
  - Drug ineffective [Unknown]
